FAERS Safety Report 9230802 (Version 1)
Quarter: 2013Q2

REPORT INFORMATION
  Report Type: Spontaneous
  Country: CA (occurrence: None)
  Receive Date: 20130411
  Receipt Date: 20130411
  Transmission Date: 20140414
  Serious: Yes (Other)
  Sender: FDA-Public Use
  Company Number: CA-1197445

PATIENT
  Sex: Female

DRUGS (3)
  1. ALCAINE [Suspect]
     Indication: OPHTHALMOLOGICAL EXAMINATION
     Route: 047
     Dates: start: 20130328, end: 20130328
  2. MYDFRIN [Suspect]
     Indication: OPHTHALMOLOGICAL EXAMINATION
     Route: 047
     Dates: start: 20130328, end: 20130328
  3. MYDRIACYL [Suspect]
     Indication: OPHTHALMOLOGICAL EXAMINATION
     Route: 047
     Dates: start: 20130328, end: 20130328

REACTIONS (3)
  - Throat tightness [None]
  - Dysphagia [None]
  - Ocular rosacea [None]
